FAERS Safety Report 9360570 (Version 2)
Quarter: 2013Q3

REPORT INFORMATION
  Report Type: Report from Study
  Country: JP (occurrence: JP)
  Receive Date: 20130621
  Receipt Date: 20130919
  Transmission Date: 20140515
  Serious: Yes (Death)
  Sender: FDA-Public Use
  Company Number: JP-SHIRE-ALL1-2013-04145

PATIENT
  Age: 60 Year
  Sex: Male

DRUGS (15)
  1. 405 (LANTHANUM CARBONATE) [Suspect]
     Indication: HYPERPHOSPHATAEMIA
     Dosage: 750 MG, OTHER
     Route: 048
     Dates: start: 20100717, end: 20120617
  2. OIL [Suspect]
     Indication: PRODUCT USED FOR UNKNOWN INDICATION
     Dosage: UNK, UNKNOWN
     Route: 042
  3. PRECIPITATED CALCIUM CARBONATE [Concomitant]
     Indication: HYPERPHOSPHATAEMIA
     Dosage: 3000 MG, UNKNOWN
     Route: 048
     Dates: start: 20090926, end: 20120617
  4. HORNEL [Concomitant]
     Indication: PRODUCT USED FOR UNKNOWN INDICATION
     Dosage: 0.3 ?G, UNKNOWN
     Route: 048
     Dates: start: 20091010, end: 20120617
  5. RISUMIC [Concomitant]
     Indication: PROPHYLAXIS
     Dosage: 20 MG, UNKNOWN (HEMODIALYSIS DAY)
     Route: 048
  6. DOPS [Concomitant]
     Indication: PROPHYLAXIS
     Dosage: 800 MG, UNK (HEMODIALYSIS DAY)
     Route: 048
  7. KERLONG [Concomitant]
     Indication: PRODUCT USED FOR UNKNOWN INDICATION
     Dosage: 5 MG, UNKNOWN (NON-HEMODIALYSIS DAY)
     Route: 048
  8. TAKEPRON [Concomitant]
     Indication: PRODUCT USED FOR UNKNOWN INDICATION
     Dosage: 15 MG, UNKNOWN
     Route: 048
  9. ALESION [Concomitant]
     Indication: PRODUCT USED FOR UNKNOWN INDICATION
     Dosage: 20 MG, UNKNOWN
     Route: 048
  10. MICARDIS [Concomitant]
     Indication: PRODUCT USED FOR UNKNOWN INDICATION
     Dosage: 20 MG, UNKNOWN
     Route: 048
  11. ADALAT [Concomitant]
     Indication: PRODUCT USED FOR UNKNOWN INDICATION
     Dosage: 20 MG, UNKNOWN
     Route: 048
  12. NESP [Concomitant]
     Indication: PRODUCT USED FOR UNKNOWN INDICATION
     Dosage: 20 ?G, UNKNOWN
     Route: 042
  13. PALUX [Concomitant]
     Indication: PRODUCT USED FOR UNKNOWN INDICATION
     Dosage: 10 ?G, UNKNOWN
     Route: 042
  14. FERRICON [Concomitant]
     Indication: PRODUCT USED FOR UNKNOWN INDICATION
     Dosage: 50 MG, UNKNOWN
     Route: 042
  15. REMITCH [Concomitant]
     Indication: PRODUCT USED FOR UNKNOWN INDICATION
     Dosage: 2.5 ?G, UNKNOWN
     Route: 048
     Dates: start: 20100918

REACTIONS (2)
  - Death [Fatal]
  - Therapy cessation [Fatal]
